FAERS Safety Report 9005500 (Version 2)
Quarter: 2013Q1

REPORT INFORMATION
  Report Type: Spontaneous
  Country: US (occurrence: US)
  Receive Date: 20130109
  Receipt Date: 20130123
  Transmission Date: 20140127
  Serious: Yes (Death, Hospitalization)
  Sender: FDA-Public Use
  Company Number: US-MPIJNJ-2012-09013

PATIENT
  Age: 63 Year
  Sex: Female

DRUGS (4)
  1. VELCADE [Suspect]
     Indication: PLASMA CELL MYELOMA
     Dosage: 1.3 MG/M2, CYCLIC
     Route: 058
     Dates: start: 20121001
  2. DEXAMETHASONE [Suspect]
     Indication: PLASMA CELL MYELOMA
     Dosage: 40 MG, CYCLIC
     Route: 048
     Dates: start: 20121022, end: 20121203
  3. DEXAMETHASONE [Suspect]
     Indication: PREMEDICATION
     Dosage: 20 MG, CYCLIC
     Route: 048
     Dates: start: 20121203, end: 20121206
  4. DEXAMETHASONE [Suspect]
     Dosage: 4 MG, CYCLIC
     Route: 048

REACTIONS (4)
  - Hypercalcaemia [Recovered/Resolved with Sequelae]
  - Asthenia [Not Recovered/Not Resolved]
  - Pneumonia [Unknown]
  - Plasmacytoma [Fatal]
